FAERS Safety Report 7146240-2 (Version None)
Quarter: 2010Q4

REPORT INFORMATION
  Report Type: 
  Country: None (occurrence: None)
  Receive Date: 20101208
  Receipt Date: 20101129
  Transmission Date: 20110411
  Serious: Yes (Other)
  Sender: FDA-Public Use
  Company Number: PHHY2010JP42474

PATIENT
  Age: 76 Year
  Sex: Male

DRUGS (3)
  1. NEORAL [Suspect]
     Indication: NEPHROTIC SYNDROME
     Dosage: 150 MG, DAILY
     Route: 048
     Dates: start: 20071201
  2. PREDNISOLONE [Concomitant]
  3. STEROIDS NOS [Concomitant]
     Dosage: UNK
     Dates: start: 20071101

REACTIONS (5)
  - HYPOALBUMINAEMIA [None]
  - HYPOPROTEINAEMIA [None]
  - OEDEMA PERIPHERAL [None]
  - PRIMARY AMYLOIDOSIS [None]
  - TREMOR [None]
